FAERS Safety Report 10781369 (Version 1)
Quarter: 2015Q1

REPORT INFORMATION
  Report Type: Spontaneous
  Country: US (occurrence: None)
  Receive Date: 20150209
  Receipt Date: 20150209
  Transmission Date: 20150721
  Serious: Yes (Disabling)
  Sender: FDA-Public Use
  Company Number: None

PATIENT
  Age: 60 Year
  Sex: Female
  Weight: 68.04 kg

DRUGS (1)
  1. CIPROFLOXACIN. [Suspect]
     Active Substance: CIPROFLOXACIN
     Indication: URINARY TRACT INFECTION
     Dosage: TAKEN BY MOUTH
     Route: 048
     Dates: start: 20141121, end: 20141124

REACTIONS (6)
  - Gait disturbance [None]
  - Bone disorder [None]
  - Swelling [None]
  - Pain in extremity [None]
  - Tendon pain [None]
  - Erythema [None]

NARRATIVE: CASE EVENT DATE: 20141121
